FAERS Safety Report 19987210 (Version 2)
Quarter: 2021Q4

REPORT INFORMATION
  Report Type: Spontaneous
  Country: US (occurrence: US)
  Receive Date: 20211022
  Receipt Date: 20211215
  Transmission Date: 20220304
  Serious: Yes (Hospitalization, Other)
  Sender: FDA-Public Use
  Company Number: NL-GLAXOSMITHKLINE-US2021GSK216016

PATIENT
  Age: 32 Year
  Sex: Male

DRUGS (4)
  1. BUPROPION [Suspect]
     Active Substance: BUPROPION
     Indication: Product used for unknown indication
     Dosage: 1500 MG
  2. AMLODIPINE [Suspect]
     Active Substance: AMLODIPINE BESYLATE
     Indication: Product used for unknown indication
     Dosage: 300 MG
  3. ALPRAZOLAM [Suspect]
     Active Substance: ALPRAZOLAM
     Indication: Product used for unknown indication
     Dosage: 3 MG
  4. ZOLPIDEM [Suspect]
     Active Substance: ZOLPIDEM TARTRATE
     Indication: Product used for unknown indication
     Dosage: UNK

REACTIONS (9)
  - Suicide attempt [Unknown]
  - Intentional overdose [Unknown]
  - Dysarthria [Unknown]
  - Blood pressure decreased [Unknown]
  - Lethargy [Unknown]
  - Distributive shock [Unknown]
  - Metabolic acidosis [Unknown]
  - Circulatory collapse [Recovered/Resolved]
  - Toxicity to various agents [Unknown]
